FAERS Safety Report 18959200 (Version 1)
Quarter: 2021Q1

REPORT INFORMATION
  Report Type: Spontaneous
  Country: DE (occurrence: DE)
  Receive Date: 20210302
  Receipt Date: 20210302
  Transmission Date: 20210420
  Serious: Yes (Death, Congenital Anomaly)
  Sender: FDA-Public Use
  Company Number: DE-HRAPH01-2021000056

PATIENT

DRUGS (1)
  1. ELLAONE [Suspect]
     Active Substance: ULIPRISTAL ACETATE
     Indication: EXPOSURE DURING PREGNANCY
     Dosage: 30 [MG/D ]
     Route: 064
     Dates: start: 2020, end: 2020

REACTIONS (7)
  - Pelvic kidney [Fatal]
  - Cerebral ventricle dilatation [Fatal]
  - Maternal exposure during pregnancy [Recovered/Resolved]
  - Cardiomegaly [Fatal]
  - Tethered cord syndrome [Fatal]
  - Atrioventricular septal defect [Fatal]
  - Cleft lip and palate [Fatal]

NARRATIVE: CASE EVENT DATE: 2020
